FAERS Safety Report 8886039 (Version 6)
Quarter: 2013Q4

REPORT INFORMATION
  Report Type: Spontaneous
  Country: US (occurrence: US)
  Receive Date: 20121105
  Receipt Date: 20131121
  Transmission Date: 20140711
  Serious: Yes (Hospitalization, Other)
  Sender: FDA-Public Use
  Company Number: US-PFIZER INC-2012274966

PATIENT
  Age: 31 Year
  Sex: Female
  Weight: 80.73 kg

DRUGS (4)
  1. LYRICA [Suspect]
     Indication: PAIN
     Dosage: 300 MG, DAILY
  2. LYRICA [Suspect]
     Indication: MIGRAINE
     Dosage: 225 MG, 2X/DAY
  3. LYRICA [Suspect]
     Indication: FIBROMYALGIA
     Dosage: 225 MG, 2X/DAY
  4. LYRICA [Suspect]
     Dosage: UNK
     Dates: start: 2013, end: 201310

REACTIONS (23)
  - Off label use [Unknown]
  - Panic attack [Unknown]
  - Dyspnoea [Unknown]
  - Malaise [Unknown]
  - Local swelling [Unknown]
  - Hypoaesthesia [Unknown]
  - Fall [Unknown]
  - Fear [Unknown]
  - Gastric disorder [Unknown]
  - Vomiting [Unknown]
  - Abdominal pain upper [Unknown]
  - Muscle spasms [Unknown]
  - Drug withdrawal syndrome [Unknown]
  - Drug dependence [Unknown]
  - Ehlers-Danlos syndrome [Unknown]
  - Hypertension [Unknown]
  - Anxiety [Unknown]
  - Swelling [Unknown]
  - Burning sensation [Unknown]
  - Nausea [Unknown]
  - Dyskinesia [Unknown]
  - Presyncope [Unknown]
  - Drug ineffective [Unknown]
